FAERS Safety Report 5443436-2 (Version None)
Quarter: 2007Q3

REPORT INFORMATION
  Report Type: 
  Country: None (occurrence: None)
  Receive Date: 20070905
  Receipt Date: 20070829
  Transmission Date: 20080115
  Serious: Yes (Other)
  Sender: FDA-Public Use
  Company Number: B0485850A

PATIENT
  Age: 45 Year
  Sex: Male

DRUGS (5)
  1. LAMICTAL [Suspect]
     Indication: EPILEPSY
     Dates: start: 20011001
  2. NEXIUM [Concomitant]
     Indication: EPILEPSY
  3. MELATONIN [Concomitant]
  4. VALLERGAN [Concomitant]
  5. DESLORATADINE [Concomitant]

REACTIONS (1)
  - THROMBOSIS [None]
